FAERS Safety Report 7096690-8 (Version None)
Quarter: 2010Q4

REPORT INFORMATION
  Report Type: 
  Country: None (occurrence: None)
  Receive Date: 20101103
  Receipt Date: 20101021
  Transmission Date: 20110411
  Serious: Yes (Hospitalization)
  Sender: FDA-Public Use
  Company Number: 2010JP005234

PATIENT
  Age: 84 Year
  Sex: Male

DRUGS (4)
  1. VESICARE [Suspect]
     Dosage: 5 MG, ORAL
     Route: 048
     Dates: start: 20100723, end: 20100807
  2. LOSARTAN POTASSIUM [Concomitant]
  3. NORVASC [Concomitant]
  4. BIOFERMIN (BACILLUS SUBTILIS, LACTOBACILLUS ACIDOPHILUS, STREPOCOCCUS [Concomitant]

REACTIONS (9)
  - ABNORMAL BEHAVIOUR [None]
  - ALCOHOL WITHDRAWAL SYNDROME [None]
  - COGNITIVE DISORDER [None]
  - DEMENTIA [None]
  - DISEASE PROGRESSION [None]
  - HEAT ILLNESS [None]
  - PNEUMONIA [None]
  - RHABDOMYOLYSIS [None]
  - SOMNOLENCE [None]
